FAERS Safety Report 20392556 (Version 1)
Quarter: 2022Q1

REPORT INFORMATION
  Report Type: Spontaneous
  Country: US (occurrence: None)
  Receive Date: 20220128
  Receipt Date: 20220128
  Transmission Date: 20220424
  Serious: Yes (Other)
  Sender: FDA-Public Use
  Company Number: None

PATIENT
  Age: 70 Year
  Sex: Female
  Weight: 96.2 kg

DRUGS (1)
  1. POMALYST [Suspect]
     Active Substance: POMALIDOMIDE
     Indication: Plasma cell myeloma
     Dosage: OTHER FREQUENCY : DAILY X21 DAYS;?
     Route: 048
     Dates: start: 20211125

REACTIONS (6)
  - Back pain [None]
  - Arthralgia [None]
  - Dizziness [None]
  - Skin weeping [None]
  - Rash [None]
  - Scab [None]

NARRATIVE: CASE EVENT DATE: 20220107
